FAERS Safety Report 25630829 (Version 2)
Quarter: 2025Q3

REPORT INFORMATION
  Report Type: Spontaneous
  Country: CA (occurrence: CA)
  Receive Date: 20250801
  Receipt Date: 20250917
  Transmission Date: 20251021
  Serious: Yes (Other)
  Sender: SANDOZ
  Company Number: CA-SANDOZ-SDZ2025CA054517

PATIENT
  Age: 52 Year
  Weight: 58 kg

DRUGS (4)
  1. FLUOROURACIL [Suspect]
     Active Substance: FLUOROURACIL
     Indication: Product used for unknown indication
     Route: 042
  2. IRINOTECAN HYDROCHLORIDE [Suspect]
     Active Substance: IRINOTECAN HYDROCHLORIDE
     Indication: Product used for unknown indication
     Route: 042
  3. OXALIPLATIN [Suspect]
     Active Substance: OXALIPLATIN
     Indication: Product used for unknown indication
     Route: 042
  4. EDOXABAN TOSYLATE [Concomitant]
     Active Substance: EDOXABAN TOSYLATE
     Indication: Product used for unknown indication
     Route: 065

REACTIONS (3)
  - Pyelonephritis [Unknown]
  - Haemoglobin decreased [Unknown]
  - Anaemia [Unknown]
